FAERS Safety Report 7554017-9 (Version None)
Quarter: 2011Q2

REPORT INFORMATION
  Report Type: 
  Country: None (occurrence: None)
  Receive Date: 20110614
  Receipt Date: 20110614
  Transmission Date: 20111010
  Serious: Yes (Hospitalization)
  Sender: FDA-Public Use
  Company Number: None

PATIENT
  Sex: Female

DRUGS (1)
  1. SUTENT [Suspect]
     Indication: CARCINOID SYNDROME
     Dosage: 25 MG DAILY BY MOUTH
     Route: 048
     Dates: start: 20110401, end: 20110519

REACTIONS (5)
  - BLOOD SODIUM DECREASED [None]
  - BLOOD POTASSIUM DECREASED [None]
  - DEHYDRATION [None]
  - RENAL DISORDER [None]
  - RASH MACULAR [None]
